FAERS Safety Report 5577123-7 (Version None)
Quarter: 2007Q4

REPORT INFORMATION
  Report Type: 
  Country: None (occurrence: None)
  Receive Date: 20071228
  Receipt Date: 20071220
  Transmission Date: 20080405
  Serious: Yes (Hospitalization, Other)
  Sender: FDA-Public Use
  Company Number: US-PFIZER INC-2005147732

PATIENT
  Sex: Male
  Weight: 65.8 kg

DRUGS (8)
  1. LIPITOR [Suspect]
     Indication: BLOOD CHOLESTEROL ABNORMAL
     Route: 048
     Dates: start: 20040217, end: 20050101
  2. COREG [Concomitant]
     Route: 048
  3. ECOTRIN [Concomitant]
     Route: 048
  4. XANAX [Concomitant]
  5. ISOSORBIDE MONONITRATE [Concomitant]
     Route: 048
  6. BUMEX [Concomitant]
  7. COUMADIN [Concomitant]
  8. ALTACE [Concomitant]

REACTIONS (18)
  - ABDOMINAL PAIN [None]
  - BLOOD CHOLESTEROL INCREASED [None]
  - CARDIAC FAILURE CONGESTIVE [None]
  - CARDIAC OPERATION [None]
  - ELECTROCARDIOGRAM T WAVE INVERSION [None]
  - FLATULENCE [None]
  - GALLBLADDER DISORDER [None]
  - GALLBLADDER NON-FUNCTIONING [None]
  - GASTRITIS [None]
  - GASTROOESOPHAGEAL REFLUX DISEASE [None]
  - HEPATIC FAILURE [None]
  - HEPATITIS [None]
  - HIATUS HERNIA [None]
  - INTRACARDIAC THROMBUS [None]
  - MYOGLOBIN BLOOD INCREASED [None]
  - NAUSEA [None]
  - PLEURAL EFFUSION [None]
  - TROPONIN I INCREASED [None]
